FAERS Safety Report 7057453-2 (Version None)
Quarter: 2010Q4

REPORT INFORMATION
  Report Type: 
  Country: None (occurrence: None)
  Receive Date: 20101022
  Receipt Date: 20101011
  Transmission Date: 20110411
  Serious: Yes (Other)
  Sender: FDA-Public Use
  Company Number: PHHY2010NL29065

PATIENT
  Sex: Male

DRUGS (5)
  1. ZOMETA [Suspect]
     Dosage: 4MG/ 5ML
     Dates: start: 20100406
  2. ZOMETA [Suspect]
     Dosage: 4MG/ 5ML
     Dates: start: 20100504
  3. ZOMETA [Suspect]
     Dosage: UNK
     Route: 042
     Dates: start: 20100720
  4. ZOMETA [Suspect]
     Dosage: UNK
     Dates: start: 20100817
  5. ZOMETA [Suspect]
     Dosage: UNK
     Dates: start: 20100913

REACTIONS (10)
  - BACK PAIN [None]
  - BONE PAIN [None]
  - CONSTIPATION [None]
  - DECREASED APPETITE [None]
  - MALAISE [None]
  - METASTASES TO BONE [None]
  - MUSCULOSKELETAL PAIN [None]
  - NEOPLASM [None]
  - PAIN [None]
  - TUMOUR PAIN [None]
